FAERS Safety Report 23895362 (Version 2)
Quarter: 2024Q2

REPORT INFORMATION
  Report Type: Spontaneous
  Country: CA (occurrence: CA)
  Receive Date: 20240524
  Receipt Date: 20240527
  Transmission Date: 20240716
  Serious: Yes (Other)
  Sender: FDA-Public Use
  Company Number: CA-009507513-2405CAN005352

PATIENT
  Age: 52 Year
  Sex: Male

DRUGS (26)
  1. KEYTRUDA [Suspect]
     Active Substance: PEMBROLIZUMAB
     Indication: Pancreatic carcinoma metastatic
     Dosage: UNK
     Route: 065
  2. CAPECITABINE [Suspect]
     Active Substance: CAPECITABINE
     Indication: Pancreatic carcinoma metastatic
     Dosage: UNK
     Route: 065
  3. ENTRECTINIB [Suspect]
     Active Substance: ENTRECTINIB
     Indication: Pancreatic carcinoma metastatic
     Dosage: UNK
     Route: 065
  4. GEMCITABINE [Suspect]
     Active Substance: GEMCITABINE
     Indication: Pancreatic carcinoma metastatic
     Dosage: UNK
     Route: 065
  5. LORBRENA [Suspect]
     Active Substance: LORLATINIB
     Indication: Pancreatic carcinoma metastatic
     Dosage: UNK
     Route: 065
  6. OXALIPLATIN [Suspect]
     Active Substance: OXALIPLATIN
     Indication: Pancreatic carcinoma metastatic
     Dosage: UNK
     Route: 065
  7. PEMETREXED [Suspect]
     Active Substance: PEMETREXED
     Indication: Pancreatic carcinoma metastatic
     Dosage: UNK; FORMULATION: POWDER FOR SOLUTION INTRAVENOUS
     Route: 065
  8. TRASTUZUMAB [Suspect]
     Active Substance: TRASTUZUMAB
     Indication: Pancreatic carcinoma metastatic
     Dosage: UNK
     Route: 065
  9. DOCETAXEL [Suspect]
     Active Substance: DOCETAXEL\DOCETAXEL ANHYDROUS
     Route: 065
  10. ALUNBRIG [Concomitant]
     Active Substance: BRIGATINIB
     Dosage: UNK
     Route: 048
  11. AMILOMER [Concomitant]
     Active Substance: AMILOMER
     Dosage: UNK
     Route: 065
  12. BEVACIZUMAB [Concomitant]
     Active Substance: BEVACIZUMAB
     Dosage: UNK
     Route: 065
  13. CISPLATIN [Concomitant]
     Active Substance: CISPLATIN
     Dosage: UNK
     Route: 042
  14. DEMCIZUMAB [Concomitant]
     Active Substance: DEMCIZUMAB
     Dosage: UNK
     Route: 065
  15. ETHIODIZED OIL [Concomitant]
     Active Substance: ETHIODIZED OIL
     Dosage: UNK
     Route: 065
  16. FLUOROURACIL SODIUM [Concomitant]
     Active Substance: FLUOROURACIL SODIUM
     Dosage: UNK
     Route: 065
  17. LEUCOVORIN [Concomitant]
     Active Substance: LEUCOVORIN\LEUCOVORIN CALCIUM
     Dosage: UNK
     Route: 065
  18. IRINOTECAN [Concomitant]
     Active Substance: IRINOTECAN
     Dosage: UNK; FORMULTION: SOLUTION INTRAVENOUS
     Route: 065
  19. MITOMYCIN [Concomitant]
     Active Substance: MITOMYCIN
     Dosage: UNK
     Route: 065
  20. OSIMERTINIB [Concomitant]
     Active Substance: OSIMERTINIB
     Dosage: UNK
     Route: 065
  21. PACLITAXEL [Concomitant]
     Active Substance: PACLITAXEL
     Dosage: UNK
     Route: 065
  22. PERTUZUMAB [Concomitant]
     Active Substance: PERTUZUMAB
     Dosage: UNK
     Route: 065
  23. TRASTUZUMAB DERUXTECAN [Concomitant]
     Active Substance: TRASTUZUMAB DERUXTECAN
     Dosage: UNK
     Route: 065
  24. ENHERTU [Concomitant]
     Active Substance: FAM-TRASTUZUMAB DERUXTECAN-NXKI
     Dosage: UNK
     Route: 065
  25. AMILOMER [Concomitant]
     Active Substance: AMILOMER
     Dosage: UNK
     Route: 065
  26. LIPIODOL [Concomitant]
     Active Substance: ETHIODIZED OIL
     Route: 065

REACTIONS (5)
  - Disease progression [Unknown]
  - Metastases to central nervous system [Unknown]
  - Metastases to liver [Unknown]
  - Pancytopenia [Unknown]
  - Off label use [Unknown]
